FAERS Safety Report 8153364-X (Version None)
Quarter: 2012Q1

REPORT INFORMATION
  Report Type: 
  Country: None (occurrence: None)
  Receive Date: 20120221
  Receipt Date: 20120209
  Transmission Date: 20120608
  Serious: Yes (Hospitalization)
  Sender: FDA-Public Use
  Company Number: FR-PFIZER INC-2011097071

PATIENT
  Age: 69 Year
  Sex: Male
  Weight: 65 kg

DRUGS (8)
  1. FRAXIPARINE [Suspect]
     Indication: PULMONARY EMBOLISM
     Dosage: 0.6 ML, 1X/DAY
     Route: 058
     Dates: start: 20110415, end: 20110503
  2. IRBESARTAN [Concomitant]
     Indication: HYPERTENSION
     Dosage: 300 MG, 1X/DAY
     Route: 048
  3. LASIX [Concomitant]
     Indication: HYPERTENSION
  4. CRIZOTINIB [Suspect]
     Indication: NON-SMALL CELL LUNG CANCER
     Dosage: 250 MG, 2X/DAY
     Route: 048
     Dates: start: 20110323, end: 20110503
  5. DOMPERIDONE [Concomitant]
     Indication: NAUSEA
     Dosage: 10 MG, 3X/DAY
     Route: 048
  6. FRAXIPARINE [Suspect]
     Dosage: 0.6 ML, 1X/DAY
     Dates: start: 20110508
  7. LASIX [Concomitant]
     Indication: RENAL FAILURE
     Dosage: 40 MG, 1X/DAY
     Route: 048
  8. ATENOLOL [Concomitant]
     Indication: HYPERTENSION
     Dosage: 25 MG, 1X/DAY
     Route: 048

REACTIONS (6)
  - PLATELET COUNT INCREASED [None]
  - MONOCYTE COUNT INCREASED [None]
  - BASOPHILIA [None]
  - BLOOD LACTATE DEHYDROGENASE INCREASED [None]
  - EOSINOPHIL COUNT INCREASED [None]
  - CYTOLYTIC HEPATITIS [None]
